FAERS Safety Report 5476858-4 (Version None)
Quarter: 2007Q4

REPORT INFORMATION
  Report Type: 
  Country: None (occurrence: None)
  Receive Date: 20071004
  Receipt Date: 20070925
  Transmission Date: 20080405
  Serious: Yes (Hospitalization)
  Sender: FDA-Public Use
  Company Number: CZ-AMGEN-UK216722

PATIENT
  Sex: Male

DRUGS (13)
  1. PANITUMUMAB [Suspect]
     Indication: COLORECTAL CANCER
     Route: 042
     Dates: start: 20070207, end: 20070416
  2. ONDANSETRON [Concomitant]
     Route: 042
     Dates: start: 20070207
  3. METOCLOPRAMIDE [Concomitant]
     Route: 016
     Dates: start: 20070207, end: 20070207
  4. TORECAN [Concomitant]
     Route: 042
     Dates: start: 20070207, end: 20070207
  5. DICLOFENAC SODIUM [Concomitant]
     Route: 042
     Dates: start: 20070207, end: 20070208
  6. KYTRIL [Concomitant]
     Route: 042
     Dates: start: 20070221, end: 20070222
  7. ZOFRAN [Concomitant]
     Route: 048
     Dates: start: 20070223, end: 20070225
  8. MODURETIC 5-50 [Concomitant]
     Route: 048
     Dates: start: 20011001
  9. TENORMIN [Concomitant]
     Route: 048
     Dates: start: 20050920
  10. LOMIR [Concomitant]
     Route: 048
     Dates: start: 20030204
  11. TPN [Concomitant]
     Route: 048
     Dates: start: 20001220
  12. ALLOPURINOL [Concomitant]
     Route: 048
     Dates: start: 20030204
  13. ISOSORBIDE MONONITRATE [Concomitant]
     Route: 048
     Dates: start: 20050920

REACTIONS (2)
  - DEEP VEIN THROMBOSIS [None]
  - VENOUS THROMBOSIS [None]
